FAERS Safety Report 4697858-8 (Version None)
Quarter: 2005Q2

REPORT INFORMATION
  Report Type: 
  Country: None (occurrence: None)
  Receive Date: 20050623
  Receipt Date: 20050418
  Transmission Date: 20051028
  Serious: Yes (Hospitalization)
  Sender: FDA-Public Use
  Company Number: PHEH2005US04428

PATIENT
  Age: 9 Year
  Sex: Male
  Weight: 27 kg

DRUGS (6)
  1. ZELNORM [Suspect]
     Indication: ABDOMINAL PAIN
     Dosage: 3 MG BID
     Dates: start: 20050203, end: 20050205
  2. MEDROL [Concomitant]
     Indication: ILEITIS
     Dosage: 8 MG, BID
     Dates: start: 20050202, end: 20050216
  3. FLUID/ELECTROLYTE REPLACEMENT THERAPY [Concomitant]
     Route: 042
  4. COLAZAL [Concomitant]
     Indication: ILEITIS
     Dosage: 750 MG, QD
     Dates: start: 20050127
  5. DEMEROL [Concomitant]
     Indication: ABDOMINAL PAIN
  6. FLAGYL [Suspect]
     Indication: ILEITIS
     Dosage: 170 MG, Q8H
     Route: 042
     Dates: start: 20050204, end: 20050205

REACTIONS (10)
  - ABDOMINAL PAIN [None]
  - ABNORMAL FAECES [None]
  - BLOOD AMYLASE INCREASED [None]
  - FREQUENT BOWEL MOVEMENTS [None]
  - GASTRITIS [None]
  - ILEITIS [None]
  - LIPASE INCREASED [None]
  - OESOPHAGITIS [None]
  - PAIN [None]
  - PANCREATITIS [None]
